FAERS Safety Report 8970987 (Version 1)
Quarter: 2012Q4

REPORT INFORMATION
  Report Type: 
  Country: US (occurrence: US)
  Receive Date: 20121218
  Receipt Date: 20121218
  Transmission Date: 20130627
  Serious: No
  Sender: FDA-Public Use
  Company Number: US-BRISTOL-MYERS SQUIBB COMPANY-17016254

PATIENT
  Age: 67 Year
  Sex: Female

DRUGS (17)
  1. ABILIFY [Suspect]
     Dates: end: 201207
  2. TRAZODONE HCL [Suspect]
     Dates: end: 201207
  3. GEODON [Suspect]
     Dates: end: 201207
  4. CELEBREX [Concomitant]
  5. CALCIUM [Concomitant]
  6. MAGNESIUM [Concomitant]
  7. ACIDOPHILUS [Concomitant]
  8. FOLIC ACID [Concomitant]
  9. ADDERALL [Concomitant]
  10. VITAMIN D [Concomitant]
  11. LUMIGAN [Concomitant]
     Dosage: Eye drops
  12. ZOCOR [Concomitant]
  13. ATIVAN [Concomitant]
  14. LAMICTAL [Concomitant]
  15. BACLOFEN [Concomitant]
  16. RECLAST [Concomitant]
  17. VITAMIN C [Concomitant]

REACTIONS (1)
  - Tardive dyskinesia [Not Recovered/Not Resolved]
